FAERS Safety Report 23944534 (Version 1)
Quarter: 2024Q2

REPORT INFORMATION
  Report Type: Spontaneous
  Country: FR (occurrence: FR)
  Receive Date: 20240606
  Receipt Date: 20240606
  Transmission Date: 20240716
  Serious: Yes (Life-Threatening)
  Sender: FDA-Public Use
  Company Number: FR-SUN PHARMACEUTICAL INDUSTRIES LTD-2024RR-450217

PATIENT
  Age: 56 Year
  Sex: Male
  Weight: 75 kg

DRUGS (7)
  1. MORPHINE [Suspect]
     Active Substance: MORPHINE
     Indication: Psychomotor hyperactivity
     Dosage: UNK
     Route: 040
     Dates: start: 20240222, end: 20240223
  2. ACUPAN [Suspect]
     Active Substance: NEFOPAM HYDROCHLORIDE
     Indication: Psychomotor hyperactivity
     Dosage: UNK
     Route: 040
     Dates: start: 20240222, end: 20240222
  3. LOXAPINE [Suspect]
     Active Substance: LOXAPINE
     Indication: Psychomotor hyperactivity
     Dosage: 50 MILLIGRAM, TOTAL 1
     Route: 030
     Dates: start: 20240222, end: 20240222
  4. OXAZEPAM [Suspect]
     Active Substance: OXAZEPAM
     Indication: Psychomotor hyperactivity
     Dosage: 50 MILLIGRAM, IN TOTAL
     Route: 048
     Dates: start: 20240222, end: 20240222
  5. VALIUM [Suspect]
     Active Substance: DIAZEPAM
     Indication: Psychomotor hyperactivity
     Dosage: 10 MILLIGRAM, IN TOTAL
     Route: 040
     Dates: start: 20240222, end: 20240222
  6. IMOVANE [Suspect]
     Active Substance: ZOPICLONE
     Indication: Psychomotor hyperactivity
     Dosage: 7.5 MILLIGRAM, IN TOTAL
     Route: 048
     Dates: start: 20240222, end: 20240222
  7. TIAPRIDE HYDROCHLORIDE [Suspect]
     Active Substance: TIAPRIDE HYDROCHLORIDE
     Indication: Psychomotor hyperactivity
     Dosage: 100 MILLIGRAM, IN TOTAL
     Route: 040
     Dates: start: 20240222, end: 20240222

REACTIONS (3)
  - Coma [Recovered/Resolved]
  - Toxicity to various agents [Recovered/Resolved]
  - Bradypnoea [Recovered/Resolved]

NARRATIVE: CASE EVENT DATE: 20240222
